FAERS Safety Report 4953919-7 (Version None)
Quarter: 2006Q1

REPORT INFORMATION
  Report Type: 
  Country: None (occurrence: None)
  Receive Date: 20060323
  Receipt Date: 20060323
  Transmission Date: 20060701
  Serious: Yes (Disabling)
  Sender: FDA-Public Use
  Company Number: None

PATIENT
  Sex: Female
  Weight: 106.5953 kg

DRUGS (2)
  1. TOPAMAX [Suspect]
     Indication: MIGRAINE
     Dosage: 25 MG BID PO
     Route: 048
     Dates: start: 20060126
  2. TOPAMAX [Suspect]
     Indication: MIGRAINE
     Dosage: 25 MG BID PO
     Route: 048
     Dates: start: 20060223

REACTIONS (5)
  - ARTHRALGIA [None]
  - BACK PAIN [None]
  - LACRIMATION INCREASED [None]
  - MYALGIA [None]
  - PAIN [None]
